FAERS Safety Report 9316862 (Version 1)
Quarter: 2013Q2

REPORT INFORMATION
  Report Type: Spontaneous
  Country: US (occurrence: None)
  Receive Date: 20130528
  Receipt Date: 20130528
  Transmission Date: 20140414
  Serious: Yes (Death)
  Sender: FDA-Public Use
  Company Number: None

PATIENT
  Age: 32 Year
  Sex: Male
  Weight: 68 kg

DRUGS (7)
  1. REMICADE 100MG VIAL JANSSEN [Suspect]
     Dosage: 15MG/KG EVERY 4 WEEKS INTRAVENOUS
     Route: 042
     Dates: start: 2007, end: 20130416
  2. POLYSPORIN [Concomitant]
  3. ATARAX [Concomitant]
     Indication: CROHN^S DISEASE
  4. SINEQUAN [Concomitant]
  5. PERCOCET [Concomitant]
  6. KENALOG [Concomitant]
  7. DOMOBERO SOAKS [Concomitant]

REACTIONS (5)
  - Rash [None]
  - Headache [None]
  - Ischaemic stroke [None]
  - Carotid artery occlusion [None]
  - General physical health deterioration [None]
